FAERS Safety Report 14261243 (Version 1)
Quarter: 2017Q4

REPORT INFORMATION
  Report Type: Spontaneous
  Country: BY (occurrence: BY)
  Receive Date: 20171207
  Receipt Date: 20171207
  Transmission Date: 20180321
  Serious: Yes (Other)
  Sender: FDA-Public Use
  Company Number: BY-B.I. PHARMACEUTICALS,INC./RIDGEFIELD-2017-BI-064442

PATIENT
  Age: 53 Year
  Sex: Female
  Weight: 96 kg

DRUGS (4)
  1. CONCOR [Concomitant]
     Active Substance: BISOPROLOL FUMARATE
     Indication: HYPERTENSION
     Route: 048
     Dates: start: 2016
  2. GLUCORED [Concomitant]
     Indication: TYPE 2 DIABETES MELLITUS
     Dosage: FORM STRENGTH: 5/500; DAILY DOSE: 15MG/1500MG
     Route: 048
     Dates: start: 2016
  3. JARDIANCE [Suspect]
     Active Substance: EMPAGLIFLOZIN
     Indication: TYPE 2 DIABETES MELLITUS
     Route: 065
     Dates: start: 201709
  4. L-CARNITIN [Concomitant]
     Indication: PRODUCT USED FOR UNKNOWN INDICATION
     Route: 048
     Dates: start: 201709

REACTIONS (3)
  - Tachycardia [Recovered/Resolved]
  - Asthenia [Not Recovered/Not Resolved]
  - Pruritus genital [Recovered/Resolved]

NARRATIVE: CASE EVENT DATE: 201709
